FAERS Safety Report 4487897-4 (Version None)
Quarter: 2004Q4

REPORT INFORMATION
  Report Type: 
  Country: None (occurrence: None)
  Receive Date: 20041026
  Receipt Date: 20041012
  Transmission Date: 20050328
  Serious: Yes (Hospitalization, Other)
  Sender: FDA-Public Use
  Company Number: USA040875273

PATIENT
  Age: 7 Year
  Sex: Female
  Weight: 19 kg

DRUGS (2)
  1. STRATTERA [Suspect]
     Indication: ATTENTION DEFICIT/HYPERACTIVITY DISORDER
     Dosage: 25 MG/1 DAY
     Dates: start: 20040715, end: 20040807
  2. IBUPROFEN [Concomitant]

REACTIONS (15)
  - ABDOMINAL PAIN [None]
  - BLOOD ALBUMIN INCREASED [None]
  - BLOOD IMMUNOGLOBULIN G DECREASED [None]
  - COUGH [None]
  - DEHYDRATION [None]
  - HEPATITIS [None]
  - LABORATORY TEST ABNORMAL [None]
  - LETHARGY [None]
  - PLATELET COUNT DECREASED [None]
  - RHINORRHOEA [None]
  - URINE OUTPUT DECREASED [None]
  - VIRAL INFECTION [None]
  - VOMITING [None]
  - WHEEZING [None]
  - WHITE BLOOD CELL COUNT INCREASED [None]
